FAERS Safety Report 19974237 (Version 1)
Quarter: 2021Q4

REPORT INFORMATION
  Report Type: Spontaneous
  Country: US (occurrence: US)
  Receive Date: 20211020
  Receipt Date: 20211020
  Transmission Date: 20220303
  Serious: No
  Sender: FDA-Public Use
  Company Number: US-PFIZER INC-202101344010

PATIENT
  Age: 46 Year
  Sex: Male
  Weight: 111.13 kg

DRUGS (2)
  1. VFEND [Suspect]
     Active Substance: VORICONAZOLE
     Indication: Acute lymphocytic leukaemia
     Dosage: UNK
     Dates: start: 202109, end: 202109
  2. VFEND [Suspect]
     Active Substance: VORICONAZOLE
     Indication: B-cell type acute leukaemia

REACTIONS (4)
  - Confusional state [Recovered/Resolved]
  - Vision blurred [Recovered/Resolved]
  - Condition aggravated [Recovered/Resolved]
  - Off label use [Unknown]

NARRATIVE: CASE EVENT DATE: 20210901
